FAERS Safety Report 5838272-9 (Version None)
Quarter: 2008Q3

REPORT INFORMATION
  Report Type: 
  Country: None (occurrence: None)
  Receive Date: 20080808
  Receipt Date: 20080729
  Transmission Date: 20090109
  Serious: Yes (Hospitalization)
  Sender: FDA-Public Use
  Company Number: BR-BAYER-200816673LA

PATIENT
  Age: 31 Year
  Sex: Male

DRUGS (1)
  1. CIPRO XR [Suspect]
     Indication: INFECTION
     Route: 048

REACTIONS (3)
  - ABDOMINAL PAIN UPPER [None]
  - INFECTION [None]
  - PAIN [None]
